FAERS Safety Report 21909614 (Version 1)
Quarter: 2023Q1

REPORT INFORMATION
  Report Type: Spontaneous
  Country: US (occurrence: US)
  Receive Date: 20230125
  Receipt Date: 20230125
  Transmission Date: 20230418
  Serious: No
  Sender: FDA-Public Use
  Company Number: US-Blueprint Medicines Corporation-742

PATIENT
  Sex: Female

DRUGS (2)
  1. AYVAKIT [Suspect]
     Active Substance: AVAPRITINIB
     Indication: Systemic mastocytosis
     Route: 065
     Dates: start: 20230101
  2. AYVAKIT [Suspect]
     Active Substance: AVAPRITINIB

REACTIONS (13)
  - Malaise [Unknown]
  - Weight increased [Unknown]
  - Pain [Unknown]
  - Hair texture abnormal [Unknown]
  - Liver function test increased [Unknown]
  - Tryptase increased [Unknown]
  - Nausea [Unknown]
  - Vomiting [Unknown]
  - Swelling [Unknown]
  - Adverse drug reaction [Unknown]
  - Red blood cell count decreased [Unknown]
  - White blood cell count decreased [Unknown]
  - Platelet count decreased [Unknown]
